FAERS Safety Report 24065316 (Version 4)
Quarter: 2024Q4

REPORT INFORMATION
  Report Type: Spontaneous
  Country: US (occurrence: US)
  Receive Date: 20240709
  Receipt Date: 20241110
  Transmission Date: 20250115
  Serious: No
  Sender: SANOFI AVENTIS
  Company Number: US-SA-SAC20240703000134

PATIENT
  Age: 81 Year
  Sex: Female

DRUGS (2)
  1. DUPIXENT [Suspect]
     Active Substance: DUPILUMAB
     Indication: Dermatitis atopic
     Dosage: 300 MG, QOW
     Route: 058
     Dates: start: 20230721
  2. KEFLEX [Suspect]
     Active Substance: CEPHALEXIN
     Indication: Lip infection
     Dosage: UNK
     Route: 065

REACTIONS (9)
  - Lacrimation increased [Unknown]
  - Pyrexia [Recovered/Resolved]
  - Asthenia [Recovered/Resolved]
  - Lip infection [Recovered/Resolved]
  - Eye irritation [Unknown]
  - Arthralgia [Not Recovered/Not Resolved]
  - Dry eye [Unknown]
  - Fatigue [Recovered/Resolved]
  - Tremor [Recovered/Resolved]

NARRATIVE: CASE EVENT DATE: 20240101
